FAERS Safety Report 11099826 (Version 2)
Quarter: 2015Q2

REPORT INFORMATION
  Report Type: Spontaneous
  Country: AT (occurrence: AT)
  Receive Date: 20150508
  Receipt Date: 20150512
  Transmission Date: 20150821
  Serious: Yes (Death, Hospitalization, Other)
  Sender: FDA-Public Use
  Company Number: AT-PFIZER INC-2015154672

PATIENT
  Age: 60 Year
  Sex: Male

DRUGS (3)
  1. INLYTA [Suspect]
     Active Substance: AXITINIB
     Dosage: UNK
     Dates: start: 201410
  2. INLYTA [Suspect]
     Active Substance: AXITINIB
     Dosage: UNK
     Dates: start: 201311, end: 201408
  3. INLYTA [Suspect]
     Active Substance: AXITINIB
     Indication: METASTATIC RENAL CELL CARCINOMA
     Dosage: 5 MG, 2X/DAY
     Dates: start: 201308, end: 201308

REACTIONS (6)
  - Ileus [Unknown]
  - Diarrhoea [Unknown]
  - Syncope [Unknown]
  - Abdominal pain [Unknown]
  - Pneumonia [Fatal]
  - Epilepsy [Unknown]

NARRATIVE: CASE EVENT DATE: 201308
